FAERS Safety Report 8779322 (Version 1)
Quarter: 2012Q4

REPORT INFORMATION
  Report Type: 
  Country: US (occurrence: US)
  Receive Date: 20120912
  Receipt Date: 20120912
  Transmission Date: 20130627
  Serious: Yes (Other)
  Sender: FDA-Public Use
  Company Number: US-AMGEN-USASP2012056671

PATIENT
  Age: 94 Year
  Sex: Male

DRUGS (2)
  1. SENSIPAR [Suspect]
     Indication: HYPERPARATHYROIDISM
     Dosage: 30 mg, qd
     Dates: start: 2012
  2. SENSIPAR [Suspect]
     Dosage: 60 mg, qd

REACTIONS (3)
  - Confusional state [Unknown]
  - Blood calcium increased [Unknown]
  - Gastrostomy tube insertion [Unknown]
